FAERS Safety Report 13564506 (Version 1)
Quarter: 2017Q2

REPORT INFORMATION
  Report Type: Spontaneous
  Country: ES (occurrence: ES)
  Receive Date: 20170519
  Receipt Date: 20170519
  Transmission Date: 20170830
  Serious: Yes (Death, Congenital Anomaly)
  Sender: FDA-Public Use
  Company Number: ES-BAYER-2017-091012

PATIENT

DRUGS (1)
  1. MIRENA [Suspect]
     Active Substance: LEVONORGESTREL
     Route: 064

REACTIONS (4)
  - Death [Fatal]
  - Premature baby [None]
  - Exposure during pregnancy [None]
  - Foetal malformation [None]

NARRATIVE: CASE EVENT DATE: 2016
